FAERS Safety Report 8847589 (Version 1)
Quarter: 2012Q4

REPORT INFORMATION
  Report Type: 
  Country: CA (occurrence: CA)
  Receive Date: 20121018
  Receipt Date: 20121018
  Transmission Date: 20130627
  Serious: Yes (Hospitalization)
  Sender: FDA-Public Use
  Company Number: CA-B.I. PHARMACEUTICALS,INC./RIDGEFIELD-2012-CN-02099CN

PATIENT
  Age: 85 Year
  Sex: Male

DRUGS (2)
  1. PRADAX [Suspect]
     Indication: ATRIAL FIBRILLATION
     Dosage: 300 mg
  2. CARBAMAZEPINE [Concomitant]
     Indication: EPILEPSY

REACTIONS (2)
  - Ischaemic stroke [Not Recovered/Not Resolved]
  - Hemiparesis [Not Recovered/Not Resolved]
